FAERS Safety Report 16714766 (Version 1)
Quarter: 2019Q3

REPORT INFORMATION
  Report Type: Other
  Country: IT (occurrence: IT)
  Receive Date: 20190819
  Receipt Date: 20190819
  Transmission Date: 20191004
  Serious: Yes (Other)
  Sender: FDA-Public Use
  Company Number: IT-MACLEODS PHARMACEUTICALS US LTD-MAC2019022607

PATIENT

DRUGS (1)
  1. LEVOFLOXACIN 500MG TABLET [Suspect]
     Active Substance: LEVOFLOXACIN
     Indication: OSTEOMYELITIS
     Dosage: 500 MILLIGRAM, QD
     Route: 048

REACTIONS (3)
  - Tendon disorder [Unknown]
  - Neuropathic muscular atrophy [Unknown]
  - Tendon rupture [Unknown]

NARRATIVE: CASE EVENT DATE: 201904
